FAERS Safety Report 7319875-1 (Version None)
Quarter: 2011Q1

REPORT INFORMATION
  Report Type: 
  Country: None (occurrence: None)
  Receive Date: 20110228
  Receipt Date: 20101105
  Transmission Date: 20110831
  Serious: No
  Sender: FDA-Public Use
  Company Number: A0891163A

PATIENT
  Age: 38 Year
  Sex: Female

DRUGS (9)
  1. INSULIN [Concomitant]
  2. LAMICTAL [Suspect]
     Indication: BIPOLAR DISORDER
     Dosage: 300MG PER DAY
     Route: 048
     Dates: start: 20080301
  3. RANITIDINE [Concomitant]
  4. KADIAN [Concomitant]
  5. LORA TAB [Concomitant]
  6. HYDROCHLOROTHIAZIDE [Concomitant]
  7. CELL CEPT [Concomitant]
  8. LISINOPRIL [Concomitant]
  9. WELLBUTRIN [Suspect]
     Indication: DEPRESSION
     Dosage: 200MG TWICE PER DAY
     Route: 048
     Dates: start: 20070601

REACTIONS (1)
  - DRUG SCREEN FALSE POSITIVE [None]
